FAERS Safety Report 11353612 (Version 1)
Quarter: 2015Q3

REPORT INFORMATION
  Report Type: Spontaneous
  Country: US (occurrence: US)
  Receive Date: 20150807
  Receipt Date: 20150807
  Transmission Date: 20151125
  Serious: No
  Sender: FDA-Public Use
  Company Number: US-JNJFOC-20150312401

PATIENT
  Sex: Male
  Weight: 81.65 kg

DRUGS (3)
  1. MENS ROGAINE EXTRA STRENGTH [Suspect]
     Active Substance: MINOXIDIL
     Indication: ALOPECIA
     Dosage: VERY LITTLE DOES NOT KNOW AMOUNT
     Route: 061
  2. MENS ROGAINE EXTRA STRENGTH [Suspect]
     Active Substance: MINOXIDIL
     Indication: ALOPECIA
     Dosage: VERY LITTLE DOES NOT KNOW AMOUNT
     Route: 061
  3. LEVOTHYROXINE. [Concomitant]
     Active Substance: LEVOTHYROXINE
     Indication: THYROID DISORDER
     Dosage: 1 MONTH
     Route: 065

REACTIONS (6)
  - Incorrect dose administered [Unknown]
  - Erythema [Not Recovered/Not Resolved]
  - Inappropriate schedule of drug administration [Unknown]
  - Product use issue [Unknown]
  - Pruritus [Not Recovered/Not Resolved]
  - Skin burning sensation [Not Recovered/Not Resolved]
